FAERS Safety Report 8276041-3 (Version None)
Quarter: 2012Q2

REPORT INFORMATION
  Report Type: 
  Country: None (occurrence: None)
  Receive Date: 20120412
  Receipt Date: 20120329
  Transmission Date: 20120825
  Serious: Yes (Hospitalization)
  Sender: FDA-Public Use
  Company Number: GB-MYLANLABS-2012S1006918

PATIENT
  Age: 66 Year
  Sex: Male
  Weight: 85.5 kg

DRUGS (2)
  1. CARBAMAZEPINE [Interacting]
     Indication: EPILEPSY
     Route: 048
     Dates: end: 20120312
  2. CLARITHROMYCIN [Suspect]
     Indication: CELLULITIS

REACTIONS (2)
  - DRUG INTERACTION [None]
  - ATAXIA [None]
